FAERS Safety Report 10479098 (Version 2)
Quarter: 2014Q4

REPORT INFORMATION
  Report Type: Report from Study
  Country: US (occurrence: US)
  Receive Date: 20140926
  Receipt Date: 20141030
  Transmission Date: 20150528
  Serious: Yes (Death, Other)
  Sender: FDA-Public Use
  Company Number: PHEH2014US019135

PATIENT
  Sex: Female

DRUGS (2)
  1. TOBI [Suspect]
     Active Substance: TOBRAMYCIN
     Indication: LUNG DISORDER
  2. TOBI [Suspect]
     Active Substance: TOBRAMYCIN
     Indication: CYSTIC FIBROSIS
     Dosage: 300 MG, BID
     Route: 055
     Dates: start: 20140712, end: 20140727

REACTIONS (4)
  - Cystic fibrosis [Unknown]
  - Respiratory failure [Fatal]
  - Bronchiectasis [Unknown]
  - Condition aggravated [Unknown]
